FAERS Safety Report 8789946 (Version 2)
Quarter: 2013Q4

REPORT INFORMATION
  Report Type: Spontaneous
  Country: US (occurrence: US)
  Receive Date: 20120917
  Receipt Date: 20131101
  Transmission Date: 20140711
  Serious: Yes (Hospitalization)
  Sender: FDA-Public Use
  Company Number: US-009507513-1209USA003361

PATIENT
  Sex: Male

DRUGS (7)
  1. ISENTRESS [Suspect]
     Dosage: 800 MG, QD
     Route: 064
  2. RETROVIR [Suspect]
     Dosage: 2 MG/KG, QD
     Route: 042
  3. RETROVIR [Suspect]
     Dosage: UNK
     Route: 064
  4. INTELENCE [Suspect]
     Dosage: 200 MG, BID
     Route: 064
  5. PREZISTA [Suspect]
     Dosage: 600 MG, BID
     Route: 064
  6. NORVIR [Suspect]
     Dosage: 2 DF, QD
     Route: 064
  7. FUZEON [Suspect]
     Dosage: 2 DF, QD
     Route: 064

REACTIONS (2)
  - Thrombocytopenia [Unknown]
  - Exposure during pregnancy [Unknown]
